FAERS Safety Report 24886812 (Version 1)
Quarter: 2025Q1

REPORT INFORMATION
  Report Type: Spontaneous
  Country: BE (occurrence: BE)
  Receive Date: 20250126
  Receipt Date: 20250126
  Transmission Date: 20250409
  Serious: Yes (Death, Other)
  Sender: ENDO
  Company Number: BE-ENDO USA, INC.-2025-000076

PATIENT
  Age: 28 Year
  Sex: Male

DRUGS (1)
  1. KETALAR [Suspect]
     Active Substance: KETAMINE HYDROCHLORIDE
     Indication: Substance use
     Route: 065

REACTIONS (7)
  - Toxicity to various agents [Fatal]
  - Urinary tract disorder [Not Recovered/Not Resolved]
  - Tubulointerstitial nephritis [Not Recovered/Not Resolved]
  - Renal papillary necrosis [Not Recovered/Not Resolved]
  - Ureteric stenosis [Not Recovered/Not Resolved]
  - Hydronephrosis [Not Recovered/Not Resolved]
  - Drug abuse [Not Recovered/Not Resolved]
